FAERS Safety Report 12901044 (Version 1)
Quarter: 2016Q4

REPORT INFORMATION
  Report Type: Spontaneous
  Country: US (occurrence: US)
  Receive Date: 20161101
  Receipt Date: 20161101
  Transmission Date: 20170207
  Serious: No
  Sender: FDA-Public Use
  Company Number: US-INCYTE CORPORATION-2016IN006742

PATIENT
  Sex: Female
  Weight: 58.96 kg

DRUGS (2)
  1. JAKAFI [Suspect]
     Active Substance: RUXOLITINIB
     Indication: MYELOFIBROSIS
     Dosage: 20 MG, QD
     Route: 048
     Dates: start: 20150215, end: 20161016
  2. JAKAFI [Suspect]
     Active Substance: RUXOLITINIB
     Dosage: 20 MG, QD
     Route: 048

REACTIONS (2)
  - Pain in extremity [Unknown]
  - Drug dose omission [Unknown]
